FAERS Safety Report 9517582 (Version 4)
Quarter: 2014Q3

REPORT INFORMATION
  Report Type: Report from Study
  Country: CA (occurrence: CA)
  Receive Date: 20130912
  Receipt Date: 20140919
  Transmission Date: 20150326
  Serious: Yes (Other)
  Sender: FDA-Public Use
  Company Number: CA-ROCHE-1273845

PATIENT
  Age: 45 Year
  Sex: Male

DRUGS (5)
  1. LEVEMIR [Concomitant]
     Active Substance: INSULIN DETEMIR
  2. METFORMIN [Concomitant]
     Active Substance: METFORMIN HYDROCHLORIDE
  3. ONGLYZA [Concomitant]
     Active Substance: SAXAGLIPTIN HYDROCHLORIDE
  4. LUCENTIS [Suspect]
     Active Substance: RANIBIZUMAB
     Indication: DIABETIC RETINAL OEDEMA
     Route: 050
  5. INSULIN [Concomitant]
     Active Substance: INSULIN NOS

REACTIONS (2)
  - Macular oedema [Not Recovered/Not Resolved]
  - Macular oedema [Not Recovered/Not Resolved]

NARRATIVE: CASE EVENT DATE: 20130819
